FAERS Safety Report 6795955-4 (Version None)
Quarter: 2010Q2

REPORT INFORMATION
  Report Type: 
  Country: None (occurrence: None)
  Receive Date: 20100625
  Receipt Date: 20100622
  Transmission Date: 20101027
  Serious: Yes (Life-Threatening, Hospitalization)
  Sender: FDA-Public Use
  Company Number: B0661801A

PATIENT
  Age: 70 Year
  Sex: Female
  Weight: 80 kg

DRUGS (9)
  1. AVANDAMET [Suspect]
     Dosage: 2IUAX PER DAY
     Route: 013
     Dates: end: 20100228
  2. SPIRONOLACTONE [Concomitant]
     Route: 048
  3. SIMVASTATIN [Concomitant]
     Dosage: 20MG PER DAY
     Route: 048
  4. VERAPAMIL [Concomitant]
     Dosage: 240MG PER DAY
  5. DONEPEZIL HCL [Concomitant]
     Dosage: 5MG PER DAY
  6. ISMN [Concomitant]
     Dosage: 60MG PER DAY
  7. LANSOPRAZOLE [Concomitant]
     Dosage: 30MG PER DAY
  8. FRUSEMIDE [Concomitant]
     Dosage: 40MG PER DAY
  9. NICORANDIL [Concomitant]
     Dosage: 40MG PER DAY

REACTIONS (2)
  - ACUTE CORONARY SYNDROME [None]
  - ACUTE MYOCARDIAL INFARCTION [None]
